FAERS Safety Report 7380881-2 (Version None)
Quarter: 2011Q1

REPORT INFORMATION
  Report Type: 
  Country: None (occurrence: None)
  Receive Date: 20110329
  Receipt Date: 20110315
  Transmission Date: 20110831
  Serious: Yes (Other)
  Sender: FDA-Public Use
  Company Number: PHHY2011US07351

PATIENT
  Sex: Female
  Weight: 81.633 kg

DRUGS (5)
  1. MARINOL [Concomitant]
     Dosage: 5 (UNKNOWN)
  2. ZANAFLEX [Concomitant]
     Dosage: 2X4 (UNKNOWN)
  3. FLUOXETINE HCL [Concomitant]
     Dosage: 40 (UNK)
  4. GILENYA [Suspect]
     Indication: MULTIPLE SCLEROSIS
     Dosage: 0.5 MG, BID
     Route: 048
     Dates: start: 20101215, end: 20110216
  5. LYRICA [Concomitant]
     Dosage: 25X2 (UNKNOWN)

REACTIONS (5)
  - JOINT SWELLING [None]
  - JOINT STIFFNESS [None]
  - PAIN IN EXTREMITY [None]
  - OSCILLOPSIA [None]
  - OVERDOSE [None]
